FAERS Safety Report 24824591 (Version 1)
Quarter: 2025Q1

REPORT INFORMATION
  Report Type: Spontaneous
  Country: US (occurrence: None)
  Receive Date: 20250108
  Receipt Date: 20250108
  Transmission Date: 20250408
  Serious: Yes (Other)
  Sender: FDA-CTU
  Company Number: None

PATIENT
  Age: 68 Year
  Sex: Male
  Weight: 113.31 kg

DRUGS (10)
  1. AMANTADINE [Suspect]
     Active Substance: AMANTADINE
     Indication: Extrapyramidal disorder
     Dosage: FREQUENCY : DAILY;?
     Route: 048
  2. BUSPIRONE [Concomitant]
     Active Substance: BUSPIRONE HYDROCHLORIDE
  3. DIVALPROEX SODIUM [Concomitant]
     Active Substance: DIVALPROEX SODIUM
  4. ATORVASTATIN [Concomitant]
     Active Substance: ATORVASTATIN
  5. GLUCOSAMINE [Concomitant]
     Active Substance: GLUCOSAMINE
  6. INVEGA SUSTENNA [Concomitant]
     Active Substance: PALIPERIDONE PALMITATE
  7. LEVOTHYROXINE [Concomitant]
     Active Substance: LEVOTHYROXINE
  8. METFORMIN [Concomitant]
     Active Substance: METFORMIN HYDROCHLORIDE
  9. PALIPERIDONE [Concomitant]
     Active Substance: PALIPERIDONE
  10. TRIHEXYPHENIDYL [Concomitant]
     Active Substance: TRIHEXYPHENIDYL

REACTIONS (6)
  - Confusional state [None]
  - Hypomania [None]
  - Lethargy [None]
  - Ammonia increased [None]
  - Nervous system disorder [None]
  - Cognitive disorder [None]

NARRATIVE: CASE EVENT DATE: 20241021
